FAERS Safety Report 22203259 (Version 1)
Quarter: 2023Q2

REPORT INFORMATION
  Report Type: Spontaneous
  Country: US (occurrence: None)
  Receive Date: 20230412
  Receipt Date: 20230412
  Transmission Date: 20230722
  Serious: Yes (Death)
  Sender: FDA-Public Use
  Company Number: None

PATIENT
  Age: 77 Year
  Sex: Male
  Weight: 52.16 kg

DRUGS (7)
  1. SOMATULINE DEPOT [Suspect]
     Active Substance: LANREOTIDE ACETATE
     Indication: Neuroendocrine tumour
     Dosage: 120MG ONCE MONTYLY IM
     Route: 030
  2. DOXAZOSIN [Concomitant]
  3. LEVAQUIN [Concomitant]
  4. LISINOPRIL [Concomitant]
  5. SANDOSTATIN LAR DEPOT [Concomitant]
  6. TAMSULOSIN [Concomitant]
  7. THORAZINE [Concomitant]

REACTIONS (1)
  - Death [None]
